FAERS Safety Report 4721509-7 (Version None)
Quarter: 2005Q3

REPORT INFORMATION
  Report Type: 
  Country: None (occurrence: None)
  Receive Date: 20050721
  Receipt Date: 20041027
  Transmission Date: 20060218
  Serious: Yes (Death, Hospitalization)
  Sender: FDA-Public Use
  Company Number: US-BRISTOL-MYERS SQUIBB COMPANY-12746855

PATIENT
  Sex: Female
  Weight: 43 kg

DRUGS (2)
  1. COUMADIN [Suspect]
     Indication: CEREBROVASCULAR ACCIDENT
     Dosage: CONSUMER WAS TAKING ^40MG FOR 10 TO 12 YEARS^
  2. COUMADIN [Suspect]
     Indication: MYOCARDIAL INFARCTION
     Dosage: CONSUMER WAS TAKING ^40MG FOR 10 TO 12 YEARS^

REACTIONS (1)
  - HAEMORRHAGE [None]
